FAERS Safety Report 16895703 (Version 2)
Quarter: 2019Q4

REPORT INFORMATION
  Report Type: Report from Study
  Country: US (occurrence: US)
  Receive Date: 20191008
  Receipt Date: 20191011
  Transmission Date: 20200122
  Serious: Yes (Hospitalization)
  Sender: FDA-Public Use
  Company Number: US-ACTELION-A-NJ2018-181538

PATIENT
  Sex: Male
  Weight: 113.38 kg

DRUGS (3)
  1. OPSUMIT [Suspect]
     Active Substance: MACITENTAN
     Indication: PULMONARY ARTERIAL HYPERTENSION
     Dosage: 10 MG, QD
     Route: 048
  2. REMODULIN [Concomitant]
     Active Substance: TREPROSTINIL
  3. TADALAFIL. [Concomitant]
     Active Substance: TADALAFIL

REACTIONS (10)
  - Catheter site pain [Not Recovered/Not Resolved]
  - Catheter site erythema [Unknown]
  - Catheter site haemorrhage [Unknown]
  - Catheter site pruritus [Unknown]
  - Malaise [Unknown]
  - Fluid retention [Unknown]
  - Catheter site swelling [Unknown]
  - Fluid overload [Unknown]
  - Cardiac failure [Unknown]
  - Disease progression [Unknown]
